FAERS Safety Report 6298337-7 (Version None)
Quarter: 2009Q3

REPORT INFORMATION
  Report Type: 
  Country: None (occurrence: None)
  Receive Date: 20090805
  Receipt Date: 20090731
  Transmission Date: 20100115
  Serious: Yes (Death, Hospitalization, Other)
  Sender: FDA-Public Use
  Company Number: PHEH2007US16326

PATIENT
  Sex: Male

DRUGS (3)
  1. GLEEVEC [Suspect]
     Indication: LEUKAEMIA
     Dosage: 800 MG/DAY
     Route: 048
     Dates: start: 20070921
  2. ARA-C [Concomitant]
  3. DAUNORUBICIN HCL [Concomitant]
     Indication: LEUKAEMIA

REACTIONS (8)
  - ACUTE RESPIRATORY DISTRESS SYNDROME [None]
  - HYPOTENSION [None]
  - MULTI-ORGAN FAILURE [None]
  - NEUTROPENIA [None]
  - PANCYTOPENIA [None]
  - PNEUMONIA [None]
  - RENAL FAILURE [None]
  - SEPSIS [None]
